FAERS Safety Report 8147342 (Version 2)
Quarter: 2013Q3

REPORT INFORMATION
  Report Type: Spontaneous
  Country: US (occurrence: None)
  Receive Date: 20110825
  Receipt Date: 20130903
  Transmission Date: 20140515
  Serious: Yes (Hospitalization, Other)
  Sender: FDA-Public Use
  Company Number: 115080

PATIENT
  Age: 70 Year
  Sex: Female
  Weight: 58.97 kg

DRUGS (1)
  1. ETOPOSIDE [Suspect]
     Indication: PLASMA CELL MYELOMA
     Dosage: 61MG IV Q 24 HOURS
     Route: 042
     Dates: start: 20101123, end: 20101126

REACTIONS (2)
  - Mental status changes [None]
  - Asthenia [None]
